FAERS Safety Report 17919174 (Version 1)
Quarter: 2020Q2

REPORT INFORMATION
  Report Type: Spontaneous
  Country: US (occurrence: US)
  Receive Date: 20200619
  Receipt Date: 20200619
  Transmission Date: 20200714
  Serious: No
  Sender: FDA-Public Use
  Company Number: US-NEPHRON PHARMACEUTICALS CORPORATION-2086297

PATIENT
  Age: 70 Year
  Sex: Female
  Weight: 54.55 kg

DRUGS (3)
  1. SODIUM CHLORIDE 7% INHALATION SOLUTION [Suspect]
     Active Substance: SODIUM CHLORIDE
     Indication: BRONCHIECTASIS
     Route: 055
  2. FAMOTIDINE. [Concomitant]
     Active Substance: FAMOTIDINE
     Route: 048
  3. REMERON [Concomitant]
     Active Substance: MIRTAZAPINE
     Route: 048

REACTIONS (2)
  - Dysgeusia [Recovering/Resolving]
  - Cough [Recovering/Resolving]
